FAERS Safety Report 16965024 (Version 1)
Quarter: 2019Q4

REPORT INFORMATION
  Report Type: Report from Study
  Country: US (occurrence: US)
  Receive Date: 20191028
  Receipt Date: 20191028
  Transmission Date: 20200122
  Serious: Yes (Hospitalization, Other)
  Sender: FDA-Public Use
  Company Number: US-VISTAPHARM, INC.-VER201910-001147

PATIENT
  Age: 1 Month
  Sex: Male

DRUGS (1)
  1. METHADONE [Suspect]
     Active Substance: METHADONE HYDROCHLORIDE
     Indication: PRODUCT USED FOR UNKNOWN INDICATION
     Dosage: UNKNOWN
     Route: 063

REACTIONS (6)
  - Somnolence [Unknown]
  - Exposure via breast milk [Unknown]
  - Respiratory arrest [Unknown]
  - Tremor [Unknown]
  - Diarrhoea [Unknown]
  - Agitation [Unknown]
